FAERS Safety Report 11097114 (Version 3)
Quarter: 2015Q2

REPORT INFORMATION
  Report Type: Spontaneous
  Country: BR (occurrence: BR)
  Receive Date: 20150507
  Receipt Date: 20150526
  Transmission Date: 20150821
  Serious: Yes (Other)
  Sender: FDA-Public Use
  Company Number: BR-PFIZER INC-2015150996

PATIENT
  Age: 89 Year
  Sex: Female
  Weight: 73 kg

DRUGS (16)
  1. BAMIFIX [Concomitant]
     Active Substance: BAMIFYLLINE HYDROCHLORIDE
     Dosage: STRENGTH 300 MG
  2. CRESTOR [Concomitant]
     Active Substance: ROSUVASTATIN CALCIUM
     Dosage: STRENGTH 10 MG
  3. RIVOTRIL [Concomitant]
     Active Substance: CLONAZEPAM
     Dosage: STRENGTH 0.5 MG
  4. TERBUTALINE [Concomitant]
     Active Substance: TERBUTALINE
     Dosage: STRENGTH 0.5 MG
  5. SOLU-MEDROL [Suspect]
     Active Substance: METHYLPREDNISOLONE SODIUM SUCCINATE
     Dosage: 40 MG, 5.5 ML TO BE ADMINISTERED IN 5 MINUTES
     Route: 042
     Dates: start: 20150327
  6. DIPHENHYDRAMINE [Concomitant]
     Active Substance: DIPHENHYDRAMINE
     Dosage: STRENGTH 50 MG/ML
  7. FLUIMUCIL [Concomitant]
     Active Substance: ACETYLCYSTEINE
     Dosage: STRENGTH 600 MG
  8. HYDROCHLOROTHIAZIDE. [Concomitant]
     Active Substance: HYDROCHLOROTHIAZIDE
     Dosage: STRENGTH 25 MG
  9. NOVALGIN [Concomitant]
     Active Substance: METAMIZOLE SODIUM
     Dosage: DROPS
  10. SEROQUEL [Concomitant]
     Active Substance: QUETIAPINE FUMARATE
     Dosage: STRENGTH 25 MG
  11. ANLODIBAL [Concomitant]
     Dosage: STRENGTH 5 MG
  12. LACTULONA [Concomitant]
     Dosage: UNK
  13. LEVOTHYROXINE [Concomitant]
     Active Substance: LEVOTHYROXINE
     Dosage: STRENGTH 25 MG
  14. MOTILIUM [Concomitant]
     Active Substance: DOMPERIDONE
     Dosage: STRENGTH 10 MG
  15. NEXIUM [Concomitant]
     Active Substance: ESOMEPRAZOLE MAGNESIUM
     Dosage: STRENGTH 40 MG, VIAL
  16. VENLAFAXINE [Concomitant]
     Active Substance: VENLAFAXINE HYDROCHLORIDE
     Dosage: STRENGTH 75 MG

REACTIONS (4)
  - Delirium [Recovered/Resolved]
  - Confusional state [Recovered/Resolved]
  - Agitation [Recovered/Resolved]
  - Disorientation [Recovered/Resolved]

NARRATIVE: CASE EVENT DATE: 20150401
